FAERS Safety Report 8395276-2 (Version None)
Quarter: 2012Q2

REPORT INFORMATION
  Report Type: 
  Country: None (occurrence: None)
  Receive Date: 20120530
  Receipt Date: 20120525
  Transmission Date: 20120825
  Serious: Yes (Death)
  Sender: FDA-Public Use
  Company Number: PHHY2012FR044986

PATIENT
  Age: 26 Year
  Sex: Male

DRUGS (2)
  1. ANTIDEPRESSANTS [Concomitant]
  2. GILENYA [Suspect]
     Indication: MULTIPLE SCLEROSIS
     Route: 048
     Dates: start: 20120101

REACTIONS (1)
  - DEATH [None]
